FAERS Safety Report 5817303-6 (Version None)
Quarter: 2008Q3

REPORT INFORMATION
  Report Type: 
  Country: None (occurrence: None)
  Receive Date: 20080722
  Receipt Date: 20080718
  Transmission Date: 20090109
  Serious: Yes (Death)
  Sender: FDA-Public Use
  Company Number: B0529805A

PATIENT
  Age: 35 Year
  Sex: Male

DRUGS (11)
  1. EPIVIR [Suspect]
     Indication: HIV INFECTION
     Dosage: 75MG PER DAY
     Route: 048
     Dates: start: 20060822, end: 20071213
  2. NORVIR [Suspect]
     Indication: HIV INFECTION
     Dosage: 100MG PER DAY
     Route: 048
     Dates: start: 20040528, end: 20071213
  3. REYATAZ [Suspect]
     Indication: HIV INFECTION
     Dosage: 300MG PER DAY
     Route: 048
     Dates: start: 20040528, end: 20071213
  4. ZIAGEN [Concomitant]
     Indication: HIV INFECTION
     Dosage: 600MG PER DAY
     Route: 048
     Dates: start: 20060822, end: 20071213
  5. CLARITHROMYCIN [Concomitant]
     Indication: OPPORTUNISTIC INFECTION PROPHYLAXIS
     Dosage: 200MG PER DAY
     Route: 048
     Dates: start: 20051014, end: 20071213
  6. NOVORAPID [Concomitant]
     Indication: DIABETES MELLITUS
     Dosage: 40IU TWICE PER DAY
     Route: 058
     Dates: start: 20060502, end: 20060821
  7. NOVORAPID [Concomitant]
     Dosage: 4IU TWICE PER DAY
     Route: 058
     Dates: start: 20060822, end: 20070331
  8. NOVORAPID [Concomitant]
     Dosage: 2IU PER DAY
     Route: 058
     Dates: start: 20061114, end: 20070331
  9. NOVORAPID [Concomitant]
     Route: 058
     Dates: start: 20070401, end: 20071213
  10. PREDNISOLONE [Concomitant]
     Indication: NEPHROPATHY
     Dosage: 2.5MG PER DAY
     Route: 065
     Dates: end: 20071213
  11. AKINETON [Concomitant]
     Indication: DEPRESSION
     Dosage: 1MG PER DAY
     Route: 065
     Dates: start: 20070110, end: 20071213

REACTIONS (2)
  - BRAIN HERNIATION [None]
  - SUBARACHNOID HAEMORRHAGE [None]
